FAERS Safety Report 6212659-7 (Version None)
Quarter: 2009Q2

REPORT INFORMATION
  Report Type: 
  Country: None (occurrence: None)
  Receive Date: 20090603
  Receipt Date: 20090529
  Transmission Date: 20091009
  Serious: Yes (Death)
  Sender: FDA-Public Use
  Company Number: BR-ROCHE-634801

PATIENT
  Age: 83 Year
  Sex: Male
  Weight: 78 kg

DRUGS (2)
  1. XELODA [Suspect]
     Indication: METASTASES TO LUNG
     Route: 048
     Dates: start: 20090512, end: 20090524
  2. AVASTIN [Suspect]
     Indication: METASTASES TO LUNG
     Route: 042
     Dates: start: 20090512, end: 20090524

REACTIONS (2)
  - ACUTE MYOCARDIAL INFARCTION [None]
  - SUDDEN DEATH [None]
